FAERS Safety Report 5355309-4 (Version None)
Quarter: 2007Q2

REPORT INFORMATION
  Report Type: 
  Country: None (occurrence: None)
  Receive Date: 20070601
  Receipt Date: 20070207
  Transmission Date: 20071010
  Serious: No
  Sender: FDA-Public Use
  Company Number: S07-USA-00592-01

PATIENT
  Age: 49 Year
  Sex: Male

DRUGS (2)
  1. CAMPRAL [Suspect]
     Indication: PROPHYLAXIS AGAINST ALCOHOLIC WITHDRAWAL SYNDROME
     Dosage: 666 MG TID PO
     Route: 048
     Dates: start: 20061101
  2. METOPROLOL SUCCINATE [Concomitant]

REACTIONS (3)
  - HEADACHE [None]
  - MUSCLE TIGHTNESS [None]
  - POLLAKIURIA [None]
